FAERS Safety Report 23972945 (Version 2)
Quarter: 2024Q3

REPORT INFORMATION
  Report Type: Report from Study
  Country: BR (occurrence: BR)
  Receive Date: 20240613
  Receipt Date: 20240702
  Transmission Date: 20241017
  Serious: Yes (Hospitalization, Other)
  Sender: JOHNSON AND JOHNSON
  Company Number: BR-JNJFOC-20240589630

PATIENT
  Age: 19 Year
  Sex: Male
  Weight: 50 kg

DRUGS (6)
  1. INFLIXIMAB [Suspect]
     Active Substance: INFLIXIMAB
     Indication: Colitis
     Dosage: THERAPY START DATE ALSO REPORTED AS 23-JUN-2023
     Route: 041
     Dates: start: 20230627
  2. INFLIXIMAB [Suspect]
     Active Substance: INFLIXIMAB
     Indication: Colitis ulcerative
     Dosage: 3 AMPOULES OF 100MG.?DOSE ALSO REPORTED AS 100 MG.
     Route: 041
  3. INFLIXIMAB [Suspect]
     Active Substance: INFLIXIMAB
     Indication: Crohn^s disease
  4. INFLIXIMAB [Suspect]
     Active Substance: INFLIXIMAB
     Indication: Colitis ulcerative
     Dosage: LAST INFUSION ON 25-APR-2024
     Route: 041
     Dates: start: 202306
  5. HYDROCORTISONE [Concomitant]
     Active Substance: HYDROCORTISONE\HYDROCORTISONE ACETATE
  6. AVIDE [Concomitant]
     Indication: Diarrhoea

REACTIONS (5)
  - Intestinal perforation [Recovering/Resolving]
  - Colitis ulcerative [Recovering/Resolving]
  - Drug resistance [Unknown]
  - Off label use [Unknown]
  - Drug ineffective [Unknown]

NARRATIVE: CASE EVENT DATE: 20230101
